FAERS Safety Report 6742295-5 (Version None)
Quarter: 2010Q2

REPORT INFORMATION
  Report Type: 
  Country: None (occurrence: None)
  Receive Date: 20100526
  Receipt Date: 20100512
  Transmission Date: 20101027
  Serious: Yes (Hospitalization)
  Sender: FDA-Public Use
  Company Number: US-SANOFI-AVENTIS-2010SA028751

PATIENT
  Age: 73 Year
  Sex: Female

DRUGS (2)
  1. APIDRA [Suspect]
     Dosage: SLIDING SCALE (3 TIMES A DAY)
     Route: 058
     Dates: start: 20060101
  2. OPTICLICK [Suspect]
     Dates: start: 20060101

REACTIONS (3)
  - ARTHROPATHY [None]
  - PAIN [None]
  - X-RAY OF PELVIS AND HIP ABNORMAL [None]
